FAERS Safety Report 23945791 (Version 1)
Quarter: 2024Q2

REPORT INFORMATION
  Report Type: Spontaneous
  Country: CA (occurrence: CA)
  Receive Date: 20240606
  Receipt Date: 20240606
  Transmission Date: 20240716
  Serious: Yes (Life-Threatening, Other)
  Sender: FDA-Public Use
  Company Number: CA-PFIZER INC-202400187461

PATIENT
  Age: 59 Year
  Sex: Male
  Weight: 89 kg

DRUGS (19)
  1. HYDROMORPHONE HYDROCHLORIDE [Suspect]
     Active Substance: HYDROMORPHONE HYDROCHLORIDE
     Indication: Pain
     Dosage: 1.5 MG, 1 EVERY 3 HOURS
     Route: 058
  2. ATORVASTATIN [Concomitant]
     Active Substance: ATORVASTATIN
     Route: 065
  3. BACLOFEN [Concomitant]
     Active Substance: BACLOFEN
  4. BISOPROLOL [Concomitant]
     Active Substance: BISOPROLOL\BISOPROLOL FUMARATE
     Route: 065
  5. CARBAMAZEPINE [Concomitant]
     Active Substance: CARBAMAZEPINE
  6. CELECOXIB [Concomitant]
     Active Substance: CELECOXIB
  7. CLOPIDOGREL [Concomitant]
     Active Substance: CLOPIDOGREL BISULFATE
  8. EZETIMIBE [Concomitant]
     Active Substance: EZETIMIBE
  9. FERROUS SULFATE [Concomitant]
     Active Substance: FERROUS SULFATE
  10. FUROSEMIDE [Concomitant]
     Active Substance: FUROSEMIDE
     Route: 065
  11. METFORMIN [Concomitant]
     Active Substance: METFORMIN HYDROCHLORIDE
  12. ORPHENADRINE [Concomitant]
     Active Substance: ORPHENADRINE
  13. OXAZEPAM [Concomitant]
     Active Substance: OXAZEPAM
  14. PANTOPRAZOLE [Concomitant]
     Active Substance: PANTOPRAZOLE
  15. PERINDOPRIL [Concomitant]
     Active Substance: PERINDOPRIL
  16. PREGABALIN [Concomitant]
     Active Substance: PREGABALIN
  17. QUETIAPINE [Concomitant]
     Active Substance: QUETIAPINE
  18. SENNOSIDES [Concomitant]
     Active Substance: SENNOSIDES
  19. VENLAFAXINE HYDROCHLORIDE [Concomitant]
     Active Substance: VENLAFAXINE HYDROCHLORIDE

REACTIONS (2)
  - Respiratory depression [Recovered/Resolved]
  - Stupor [Recovered/Resolved]
